FAERS Safety Report 15609279 (Version 1)
Quarter: 2018Q4

REPORT INFORMATION
  Report Type: Spontaneous
  Country: US (occurrence: US)
  Receive Date: 20181112
  Receipt Date: 20181112
  Transmission Date: 20190205
  Serious: No
  Sender: FDA-Public Use
  Company Number: US-BAUSCH-BL-2018-030255

PATIENT
  Age: 82 Year
  Sex: Male
  Weight: 113 kg

DRUGS (1)
  1. FLUOROURACIL. [Suspect]
     Active Substance: FLUOROURACIL
     Indication: NEOPLASM MALIGNANT
     Route: 061
     Dates: start: 20181021, end: 20181028

REACTIONS (4)
  - Blister [Not Recovered/Not Resolved]
  - Dysphonia [Not Recovered/Not Resolved]
  - Rash [Not Recovered/Not Resolved]
  - Toothache [Not Recovered/Not Resolved]

NARRATIVE: CASE EVENT DATE: 201810
